FAERS Safety Report 21485106 (Version 1)
Quarter: 2022Q4

REPORT INFORMATION
  Report Type: Spontaneous
  Country: US (occurrence: None)
  Receive Date: 20221019
  Receipt Date: 20221019
  Transmission Date: 20230113
  Serious: Yes (Hospitalization)
  Sender: FDA-Public Use
  Company Number: None

PATIENT
  Age: 69 Year
  Sex: Male
  Weight: 101.5 kg

DRUGS (12)
  1. OPDUALAG [Suspect]
     Active Substance: NIVOLUMAB\RELATLIMAB-RMBW
     Indication: Metastatic malignant melanoma
     Dosage: FREQUENCY : MONTHLY;?
     Route: 041
     Dates: start: 20220721, end: 20221019
  2. APIXABAN [Concomitant]
     Active Substance: APIXABAN
  3. CARVEDILOL [Concomitant]
     Active Substance: CARVEDILOL
  4. SYNJARDY [Concomitant]
     Active Substance: EMPAGLIFLOZIN\METFORMIN HYDROCHLORIDE
  5. EZETIMIBE [Concomitant]
     Active Substance: EZETIMIBE
  6. FENOFIBRATE [Concomitant]
     Active Substance: FENOFIBRATE
  7. VASCEPA [Concomitant]
     Active Substance: ICOSAPENT ETHYL
  8. LISINOPRIL [Concomitant]
     Active Substance: LISINOPRIL
  9. ROSUVASTATIN [Concomitant]
     Active Substance: ROSUVASTATIN
  10. SOTALOL [Concomitant]
     Active Substance: SOTALOL
  11. KETOROLAC [Concomitant]
     Active Substance: KETOROLAC TROMETHAMINE
  12. NIVOLUMAB\RELATLIMAB-RMBW [Suspect]
     Active Substance: NIVOLUMAB\RELATLIMAB-RMBW
     Indication: Metastatic malignant melanoma
     Dosage: EVERY 4 WEEKS ??TROPONINS TAKEN 3 HOURS APART
     Route: 041
     Dates: start: 20220721, end: 20221019

REACTIONS (6)
  - Neck pain [None]
  - Pain in extremity [None]
  - Arthralgia [None]
  - Swelling [None]
  - Troponin increased [None]
  - Myocarditis [None]

NARRATIVE: CASE EVENT DATE: 20221018
